FAERS Safety Report 5508258-2 (Version None)
Quarter: 2007Q4

REPORT INFORMATION
  Report Type: 
  Country: None (occurrence: None)
  Receive Date: 20071106
  Receipt Date: 20071031
  Transmission Date: 20080405
  Serious: Yes (Hospitalization)
  Sender: FDA-Public Use
  Company Number: PFIZER INC-2007091719

PATIENT
  Sex: Female
  Weight: 72.6 kg

DRUGS (3)
  1. VISTARIL CAP [Suspect]
     Route: 048
  2. LORAZEPAM [Interacting]
     Indication: EMOTIONAL DISORDER
     Dosage: DAILY DOSE:.5MG-FREQ:FREQUENCY: DAILY
     Route: 048
  3. PROLIXIN DECANOATE [Interacting]
     Indication: EMOTIONAL DISORDER
     Dosage: TEXT:1 INJECTION Q MONTH

REACTIONS (5)
  - DEHYDRATION [None]
  - DRUG INTERACTION [None]
  - TENSION [None]
  - TREMOR [None]
  - VOMITING [None]
